FAERS Safety Report 11927944 (Version 3)
Quarter: 2016Q1

REPORT INFORMATION
  Report Type: Spontaneous
  Country: CH (occurrence: CH)
  Receive Date: 20160119
  Receipt Date: 20160216
  Transmission Date: 20160526
  Serious: Yes (Other)
  Sender: FDA-Public Use
  Company Number: CH-009507513-1601CHE005940

PATIENT
  Age: 26 Year
  Sex: Female
  Weight: 50 kg

DRUGS (6)
  1. EFFEXOR [Suspect]
     Active Substance: VENLAFAXINE HYDROCHLORIDE
     Indication: DEPRESSION
     Dosage: 75 MG, QD
     Route: 048
     Dates: start: 201501
  2. SPASMO-CANULASE [Concomitant]
     Active Substance: AMYLASE\CELLULASE\GLUTAMIC ACID HYDROCHLORIDE\PANCRELIPASE\PEPSIN\PROTEASE
     Indication: IRRITABLE BOWEL SYNDROME
     Dosage: 1 DF, TID
     Route: 048
     Dates: start: 201505
  3. REMERON [Suspect]
     Active Substance: MIRTAZAPINE
     Dosage: 30 MG, QD
     Route: 048
     Dates: start: 201501
  4. VITAMIN D3 WILD [Concomitant]
     Dosage: 80 DROPS PER WEEK
     Route: 048
     Dates: start: 201501
  5. RESOURCE PROTEIN [Concomitant]
     Dosage: ONCE DAILY
     Route: 048
     Dates: start: 201501, end: 201509
  6. CALCIUM SANDOZ D [Concomitant]
     Dosage: ONCE DAILY
     Route: 048
     Dates: start: 201501

REACTIONS (1)
  - Osteonecrosis [Not Recovered/Not Resolved]

NARRATIVE: CASE EVENT DATE: 201510
